FAERS Safety Report 4878872-6 (Version None)
Quarter: 2005Q4

REPORT INFORMATION
  Report Type: 
  Country: None (occurrence: None)
  Receive Date: 20051209
  Receipt Date: 20050525
  Transmission Date: 20060501
  Serious: Yes (Other)
  Sender: FDA-Public Use
  Company Number: USA-2005-0020448

PATIENT
  Age: 20 Year
  Sex: Male

DRUGS (3)
  1. OXYCONTIN [Suspect]
     Dosage: NASAL
     Route: 045
  2. METHADONE [Concomitant]
  3. HYDROCODONE BITARTRATE [Concomitant]

REACTIONS (1)
  - POLYSUBSTANCE ABUSE [None]
